FAERS Safety Report 7489268-5 (Version None)
Quarter: 2011Q2

REPORT INFORMATION
  Report Type: 
  Country: None (occurrence: None)
  Receive Date: 20110518
  Receipt Date: 20110510
  Transmission Date: 20111010
  Serious: Yes (Other)
  Sender: FDA-Public Use
  Company Number: GB-CEPHALON-2011001113

PATIENT
  Sex: Female

DRUGS (1)
  1. PROVIGIL [Suspect]
     Indication: CHRONIC FATIGUE SYNDROME
     Route: 048
     Dates: start: 20080628, end: 20110315

REACTIONS (6)
  - SALIVARY HYPERSECRETION [None]
  - WEIGHT DECREASED [None]
  - COUGH [None]
  - STAPHYLOCOCCAL INFECTION [None]
  - SWOLLEN TONGUE [None]
  - THIRST [None]
